FAERS Safety Report 23645712 (Version 1)
Quarter: 2024Q1

REPORT INFORMATION
  Report Type: Spontaneous
  Country: ES (occurrence: ES)
  Receive Date: 20240319
  Receipt Date: 20240319
  Transmission Date: 20240410
  Serious: Yes (Hospitalization, Other)
  Sender: FDA-Public Use
  Company Number: ES-AEMPS-1494919

PATIENT
  Age: 65 Year
  Sex: Male

DRUGS (3)
  1. IRINOTECAN [Interacting]
     Active Substance: IRINOTECAN
     Indication: Adenocarcinoma of colon
     Dosage: 120 MILLIGRAM/SQ. METER, 2WEEKS
     Route: 042
     Dates: start: 20230214, end: 20230428
  2. AFLIBERCEPT [Interacting]
     Active Substance: AFLIBERCEPT
     Indication: Adenocarcinoma of colon
     Dosage: UNK
     Route: 042
     Dates: start: 20230214, end: 20230428
  3. FLUOROURACIL [Interacting]
     Active Substance: FLUOROURACIL
     Indication: Adenocarcinoma of colon
     Dosage: 200 MILLIGRAM/SQ. METER, 2WEEKS
     Route: 042
     Dates: start: 20230214, end: 20230428

REACTIONS (2)
  - Diarrhoea [Recovered/Resolved]
  - Pancytopenia [Recovered/Resolved]

NARRATIVE: CASE EVENT DATE: 20230413
